FAERS Safety Report 10562666 (Version 1)
Quarter: 2014Q4

REPORT INFORMATION
  Report Type: Spontaneous
  Country: GB (occurrence: GB)
  Receive Date: 20141104
  Receipt Date: 20141104
  Transmission Date: 20150529
  Serious: Yes (Other)
  Sender: FDA-Public Use
  Company Number: GB-WATSON-2014-23352

PATIENT
  Age: 65 Year
  Sex: Female
  Weight: 95 kg

DRUGS (3)
  1. THYROXINE [Concomitant]
     Active Substance: LEVOTHYROXINE
     Indication: PRODUCT USED FOR UNKNOWN INDICATION
     Dosage: UNK
     Route: 065
  2. OMEPRAZOLE. [Concomitant]
     Active Substance: OMEPRAZOLE
     Indication: PRODUCT USED FOR UNKNOWN INDICATION
     Dosage: UNK
     Route: 065
  3. CLARITHROMYCIN (UNKNOWN) [Suspect]
     Active Substance: CLARITHROMYCIN
     Indication: HELICOBACTER GASTRITIS
     Dosage: 1000 MG, UNK
     Route: 048
     Dates: start: 20141001

REACTIONS (10)
  - Oral pain [Recovering/Resolving]
  - Glossodynia [Recovering/Resolving]
  - Lip pain [Recovering/Resolving]
  - Muscle contractions involuntary [Recovering/Resolving]
  - Condition aggravated [Unknown]
  - Paraesthesia oral [Recovering/Resolving]
  - Chapped lips [Recovering/Resolving]
  - Hot flush [Recovering/Resolving]
  - Dysgeusia [Recovering/Resolving]
  - Lip swelling [Recovering/Resolving]
